FAERS Safety Report 8797775 (Version 1)
Quarter: 2012Q4

REPORT INFORMATION
  Report Type: Spontaneous
  Country: US (occurrence: None)
  Receive Date: 20120917
  Receipt Date: 20120917
  Transmission Date: 20130627
  Serious: Yes (Hospitalization)
  Sender: FDA-Public Use
  Company Number: None

PATIENT
  Age: 47 Year
  Sex: Male
  Weight: 86.91 kg

DRUGS (4)
  1. 5 FLUOROURACIL [Suspect]
     Indication: COLON CANCER
     Route: 042
     Dates: start: 20120822
  2. 5 FLUOROURACIL [Suspect]
     Indication: COLON CANCER
     Route: 042
     Dates: start: 20120822, end: 20120824
  3. LUOCOVON [Concomitant]
  4. OXZLIPLATIN [Concomitant]

REACTIONS (1)
  - Chest pain [None]
